FAERS Safety Report 18549350 (Version 1)
Quarter: 2020Q4

REPORT INFORMATION
  Report Type: Spontaneous
  Country: IT (occurrence: IT)
  Receive Date: 20201126
  Receipt Date: 20201126
  Transmission Date: 20210114
  Serious: Yes (Hospitalization)
  Sender: FDA-Public Use
  Company Number: IT-ACCORD-209164

PATIENT
  Age: 17 Year
  Sex: Male
  Weight: 92 kg

DRUGS (9)
  1. BACTRIM [Concomitant]
     Active Substance: SULFAMETHOXAZOLE\TRIMETHOPRIM
     Route: 048
     Dates: start: 20200227, end: 20200301
  2. TRIMETON [Concomitant]
     Active Substance: CHLORPHENIRAMINE MALEATE
     Route: 042
     Dates: start: 20200227, end: 20200301
  3. ZOFRAN [Concomitant]
     Active Substance: ONDANSETRON HYDROCHLORIDE
     Route: 048
     Dates: start: 20200227, end: 20200301
  4. DECADRON [Concomitant]
     Active Substance: DEXAMETHASONE
     Route: 042
     Dates: start: 20200227, end: 20200227
  5. ANTRA [Concomitant]
     Active Substance: OMEPRAZOLE
     Route: 048
     Dates: start: 20200227, end: 20200301
  6. ETOPOSIDE. [Suspect]
     Active Substance: ETOPOSIDE
     Indication: EWING^S SARCOMA
     Route: 042
     Dates: start: 20200227, end: 20200301
  7. APREPITANT. [Concomitant]
     Active Substance: APREPITANT
     Dosage: 125 MG,80 MG HARD CAPSULES
     Route: 048
     Dates: start: 20200227, end: 20200229
  8. ENDOXAN BAXTER [Suspect]
     Active Substance: CYCLOPHOSPHAMIDE
     Indication: EWING^S SARCOMA
     Route: 042
     Dates: start: 20200227, end: 20200301
  9. DILATREND [Concomitant]
     Active Substance: CARVEDILOL
     Route: 048
     Dates: start: 20200227, end: 20200301

REACTIONS (3)
  - Aplasia [Recovering/Resolving]
  - Off label use [Unknown]
  - Pyrexia [Recovering/Resolving]

NARRATIVE: CASE EVENT DATE: 20200310
